FAERS Safety Report 15667722 (Version 1)
Quarter: 2018Q4

REPORT INFORMATION
  Report Type: Spontaneous
  Country: HU (occurrence: HU)
  Receive Date: 20181128
  Receipt Date: 20181128
  Transmission Date: 20190205
  Serious: Yes (Life-Threatening, Hospitalization)
  Sender: FDA-Public Use
  Company Number: PHHY2018HU168064

PATIENT
  Age: 17 Year
  Sex: Male
  Weight: 70 kg

DRUGS (6)
  1. XILOX [Suspect]
     Active Substance: NIMESULIDE
     Indication: PAIN
     Dosage: UNK
     Route: 065
  2. XILOX [Suspect]
     Active Substance: NIMESULIDE
     Indication: TONSILLECTOMY
     Dosage: 200 MG, QD
     Route: 065
     Dates: start: 20180916, end: 20180916
  3. DICLOFENAC SODIUM. [Suspect]
     Active Substance: DICLOFENAC SODIUM
     Indication: PAIN
     Dosage: 200 MG, QD
     Route: 065
     Dates: start: 20180911, end: 20180915
  4. DICLOFENAC [Concomitant]
     Active Substance: DICLOFENAC
     Indication: TONSILLECTOMY
     Dosage: UNK
     Route: 065
  5. METAMIZOLE SODIUM [Concomitant]
     Active Substance: METAMIZOLE SODIUM
     Indication: TONSILLECTOMY
     Dosage: UNK
     Route: 065
  6. MIDAZOLAM [Concomitant]
     Active Substance: MIDAZOLAM HYDROCHLORIDE
     Indication: TONSILLECTOMY
     Dosage: UNK
     Route: 065

REACTIONS (2)
  - Wrong technique in product usage process [Recovered/Resolved]
  - Gastric perforation [Recovering/Resolving]

NARRATIVE: CASE EVENT DATE: 20180916
